FAERS Safety Report 6310934 (Version 5)
Quarter: 2018Q4

REPORT INFORMATION
  Report Type: Spontaneous
  Country: JP (occurrence: JP)
  Receive Date: 20070514
  Receipt Date: 20181116
  Transmission Date: 20190205
  Serious: Yes (Death, Life-Threatening)
  Sender: FDA-Public Use
  Company Number: PHBS2007JP07733

PATIENT
  Age: 58 Year
  Sex: Male
  Weight: 57 kg

DRUGS (10)
  1. GLIVEC [Suspect]
     Active Substance: IMATINIB MESYLATE
     Indication: ACUTE LYMPHOCYTIC LEUKAEMIA
     Dosage: 600 MG, QD
     Route: 048
     Dates: start: 20070501, end: 20070503
  2. LOXONIN [Suspect]
     Active Substance: LOXOPROFEN SODIUM
     Indication: PYREXIA
     Dosage: 60 MG, QD
     Route: 048
     Dates: start: 20070503, end: 20070503
  3. CYLOCIDE [Concomitant]
     Active Substance: CYTARABINE
     Indication: ACUTE LYMPHOCYTIC LEUKAEMIA
     Dosage: 150 MG, QD
     Route: 042
     Dates: start: 20070420, end: 20070424
  4. IDARUBICIN HYDROCHLORIDE. [Concomitant]
     Active Substance: IDARUBICIN HYDROCHLORIDE
     Indication: ACUTE LYMPHOCYTIC LEUKAEMIA
     Dosage: 18 MG, QD
     Route: 042
     Dates: start: 20070420, end: 20070422
  5. FUNGUARD [Suspect]
     Active Substance: MICAFUNGIN SODIUM
     Indication: WHITE BLOOD CELL COUNT DECREASED
     Dosage: 150 MG, QD
     Route: 042
     Dates: start: 20070423
  6. GLIVEC [Suspect]
     Active Substance: IMATINIB MESYLATE
     Indication: PROPHYLAXIS
  7. VANCOMYCIN [Concomitant]
     Active Substance: VANCOMYCIN
     Indication: SEPSIS
     Dosage: 1 G, QD
     Route: 042
     Dates: start: 20070504, end: 20070504
  8. MEROPEN [Suspect]
     Active Substance: MEROPENEM
     Indication: SEPSIS
     Dosage: 2 G, QD
     Route: 042
     Dates: start: 20070503, end: 20070504
  9. PREDNISOLONE. [Concomitant]
     Active Substance: PREDNISOLONE
     Indication: ACUTE LYMPHOCYTIC LEUKAEMIA
     Dosage: 100 MG, QD
     Route: 048
     Dates: start: 20070423, end: 20070503
  10. NORVASC [Concomitant]
     Active Substance: AMLODIPINE BESYLATE
     Indication: HYPERTENSION
     Dosage: 5 MG, QD
     Route: 048
     Dates: start: 20070428, end: 20070503

REACTIONS (25)
  - Sepsis [Fatal]
  - Blood pressure decreased [Fatal]
  - Alanine aminotransferase increased [Fatal]
  - Hepatotoxicity [Fatal]
  - Blood lactate dehydrogenase increased [Fatal]
  - Pyrexia [Fatal]
  - Malaise [Fatal]
  - Blood urea increased [Fatal]
  - Circulatory collapse [Fatal]
  - Acute respiratory failure [Unknown]
  - Oliguria [Fatal]
  - Staphylococcus test positive [Fatal]
  - Gamma-glutamyltransferase increased [Fatal]
  - Pneumonia [Unknown]
  - Renal disorder [Fatal]
  - Liver disorder [Fatal]
  - Aspartate aminotransferase increased [Fatal]
  - Bone marrow failure [Fatal]
  - White blood cell count decreased [Fatal]
  - Urticaria [Recovered/Resolved]
  - Rash [Recovered/Resolved]
  - Blister [Recovered/Resolved]
  - Blood creatinine increased [Fatal]
  - Vomiting [Fatal]
  - Generalised erythema [Recovered/Resolved]

NARRATIVE: CASE EVENT DATE: 20070503
